FAERS Safety Report 24161197 (Version 1)
Quarter: 2024Q3

REPORT INFORMATION
  Report Type: Spontaneous
  Country: CH (occurrence: CH)
  Receive Date: 20240801
  Receipt Date: 20240801
  Transmission Date: 20241016
  Serious: Yes (Other)
  Sender: MERZ
  Company Number: CH-Merz Pharmaceuticals GmbH-2024070000150

PATIENT
  Age: 35 Year
  Sex: Female

DRUGS (1)
  1. BOCOUTURE [Suspect]
     Active Substance: BOTULINUM TOXIN TYPE A
     Indication: Bruxism
     Dosage: 60 025
     Dates: start: 20240719, end: 20240719

REACTIONS (2)
  - Paralysis [Not Recovered/Not Resolved]
  - Off label use [Unknown]

NARRATIVE: CASE EVENT DATE: 20240719
